FAERS Safety Report 22606708 (Version 1)
Quarter: 2023Q2

REPORT INFORMATION
  Report Type: Spontaneous
  Country: US (occurrence: US)
  Receive Date: 20230615
  Receipt Date: 20230615
  Transmission Date: 20230722
  Serious: No
  Sender: FDA-Public Use
  Company Number: US-MYLANLABS-2023M1050033

PATIENT
  Sex: Female

DRUGS (3)
  1. LYRICA [Suspect]
     Active Substance: PREGABALIN
     Indication: Pain
     Dosage: UNK
     Route: 048
  2. LYRICA [Suspect]
     Active Substance: PREGABALIN
     Indication: Anxiety
  3. LYRICA [Suspect]
     Active Substance: PREGABALIN
     Indication: Pain management

REACTIONS (2)
  - Off label use [Unknown]
  - Intentional product misuse [Unknown]
